FAERS Safety Report 9783216 (Version 2)
Quarter: 2014Q1

REPORT INFORMATION
  Report Type: Spontaneous
  Country: CA (occurrence: CA)
  Receive Date: 20131226
  Receipt Date: 20140321
  Transmission Date: 20141002
  Serious: Yes (Other)
  Sender: FDA-Public Use
  Company Number: PHHY2013CA149392

PATIENT
  Age: 91 Year
  Sex: Female

DRUGS (2)
  1. BRIMONIDIN 1A PHARMA [Suspect]
     Indication: GLAUCOMA
     Dosage: 2 DRP, BID
     Route: 047
     Dates: start: 20131214, end: 20131215
  2. LATANOPROST DIE [Concomitant]

REACTIONS (3)
  - Blood pressure increased [Recovered/Resolved]
  - Feeling abnormal [Recovering/Resolving]
  - Headache [Recovering/Resolving]
